FAERS Safety Report 5779540-9 (Version None)
Quarter: 2008Q2

REPORT INFORMATION
  Report Type: 
  Country: None (occurrence: None)
  Receive Date: 20080619
  Receipt Date: 20080609
  Transmission Date: 20081010
  Serious: Yes (Other)
  Sender: FDA-Public Use
  Company Number: US-PFIZER INC-2007098100

PATIENT
  Sex: Male
  Weight: 61.7 kg

DRUGS (1)
  1. CELEBREX [Suspect]
     Route: 048
     Dates: start: 20040825, end: 20050108

REACTIONS (1)
  - RETINAL ARTERY OCCLUSION [None]
